FAERS Safety Report 6782084-9 (Version None)
Quarter: 2010Q2

REPORT INFORMATION
  Report Type: 
  Country: None (occurrence: None)
  Receive Date: 20100621
  Receipt Date: 20100611
  Transmission Date: 20101027
  Serious: Yes (Hospitalization)
  Sender: FDA-Public Use
  Company Number: B0661553A

PATIENT
  Sex: Female

DRUGS (7)
  1. AUGMENTIN '125' [Suspect]
     Indication: DRUG USE FOR UNKNOWN INDICATION
     Route: 065
     Dates: start: 20100515
  2. ACETYL SALICYLIC ACID [Concomitant]
     Route: 048
  3. LERCANIDIPINE [Concomitant]
     Route: 048
  4. FOSINOPRIL SODIUM [Concomitant]
     Route: 048
  5. PREDNISONE [Concomitant]
     Route: 048
     Dates: start: 20100516, end: 20100520
  6. CETIRIZINE HCL [Concomitant]
     Route: 048
     Dates: start: 20100516, end: 20100520
  7. CORTICOSTEROID [Concomitant]

REACTIONS (3)
  - FACE OEDEMA [None]
  - RASH PRURITIC [None]
  - VASCULITIS [None]
